FAERS Safety Report 14683262 (Version 1)
Quarter: 2018Q1

REPORT INFORMATION
  Report Type: Spontaneous
  Country: US (occurrence: US)
  Receive Date: 20180326
  Receipt Date: 20180326
  Transmission Date: 20180509
  Serious: Yes (Disabling)
  Sender: FDA-Public Use
  Company Number: None

PATIENT
  Sex: Female
  Weight: 69.4 kg

DRUGS (3)
  1. NAPROXEN 500MG [Suspect]
     Active Substance: NAPROXEN
     Indication: ARTHRITIS
     Route: 048
  2. GLIPIZIDE 5MG [Suspect]
     Active Substance: GLIPIZIDE
  3. FAMILY DOLLAR WELLNESS LAXETIVE [Concomitant]

REACTIONS (10)
  - Skin disorder [None]
  - Eye pruritus [None]
  - Eye pain [None]
  - Dyspnoea [None]
  - Ocular hyperaemia [None]
  - Tongue blistering [None]
  - Oropharyngeal blistering [None]
  - Fatigue [None]
  - Eye swelling [None]
  - Headache [None]
